FAERS Safety Report 8266437-8 (Version None)
Quarter: 2012Q2

REPORT INFORMATION
  Report Type: 
  Country: None (occurrence: None)
  Receive Date: 20120406
  Receipt Date: 20120404
  Transmission Date: 20120825
  Serious: Yes (Death, Hospitalization)
  Sender: FDA-Public Use
  Company Number: US-MERCK-1202USA01521

PATIENT
  Age: 26 Year
  Sex: Male

DRUGS (1)
  1. ISENTRESS [Suspect]
     Route: 048

REACTIONS (3)
  - DEATH [None]
  - MENTAL STATUS CHANGES [None]
  - RESPIRATORY FAILURE [None]
